FAERS Safety Report 6138932-9 (Version None)
Quarter: 2009Q1

REPORT INFORMATION
  Report Type: 
  Country: None (occurrence: None)
  Receive Date: 20090331
  Receipt Date: 20090327
  Transmission Date: 20090719
  Serious: Yes (Hospitalization)
  Sender: FDA-Public Use
  Company Number: US-ASTRAZENECA-2009UW07846

PATIENT
  Age: 40 Year
  Sex: Male
  Weight: 104.3 kg

DRUGS (3)
  1. SEROQUEL [Suspect]
     Route: 048
  2. RISPERDAL [Concomitant]
     Indication: BIPOLAR DISORDER
  3. COGENTIN [Concomitant]
     Indication: BIPOLAR DISORDER

REACTIONS (6)
  - BLOOD CHOLESTEROL INCREASED [None]
  - DRY SKIN [None]
  - MOOD SWINGS [None]
  - PARANOIA [None]
  - SKIN BURNING SENSATION [None]
  - WEIGHT INCREASED [None]
